FAERS Safety Report 13307097 (Version 1)
Quarter: 2017Q1

REPORT INFORMATION
  Report Type: Spontaneous
  Country: IT (occurrence: IT)
  Receive Date: 20170308
  Receipt Date: 20170308
  Transmission Date: 20170428
  Serious: Yes (Hospitalization)
  Sender: FDA-Public Use
  Company Number: IT-PFIZER INC-2017100294

PATIENT
  Age: 78 Year
  Sex: Male

DRUGS (2)
  1. ANZATAX [Suspect]
     Active Substance: PACLITAXEL
     Indication: GASTROINTESTINAL NEOPLASM
     Dosage: 110 MG, CYCLIC
     Route: 042
     Dates: start: 20160922, end: 20160922
  2. CYRAMZA [Suspect]
     Active Substance: RAMUCIRUMAB
     Dosage: 460 MG, CYCLIC
     Route: 042
     Dates: start: 20160922, end: 20160922

REACTIONS (2)
  - Hemiparesis [Recovering/Resolving]
  - Ischaemia [Recovering/Resolving]

NARRATIVE: CASE EVENT DATE: 20160926
